FAERS Safety Report 9748245 (Version 1)
Quarter: 2013Q4

REPORT INFORMATION
  Report Type: Spontaneous
  Country: CA (occurrence: CA)
  Receive Date: 20131212
  Receipt Date: 20131212
  Transmission Date: 20140711
  Serious: Yes (Death)
  Sender: FDA-Public Use
  Company Number: CA-JNJFOC-20131118666

PATIENT
  Age: 66 Year
  Sex: Male

DRUGS (2)
  1. TYLENOL NO 4 [Suspect]
     Indication: PAIN
     Route: 065
  2. HYDROMORPHONE [Concomitant]
     Indication: PAIN
     Dosage: 1-2
     Route: 065
     Dates: start: 200707

REACTIONS (2)
  - Death [Fatal]
  - Drug ineffective [Unknown]
